FAERS Safety Report 4718034-6 (Version None)
Quarter: 2005Q3

REPORT INFORMATION
  Report Type: 
  Country: None (occurrence: None)
  Receive Date: 20050718
  Receipt Date: 20050718
  Transmission Date: 20060218
  Serious: Yes (Hospitalization)
  Sender: FDA-Public Use
  Company Number: None

PATIENT
  Sex: Female
  Weight: 86.6 kg

DRUGS (17)
  1. EVOXAC [Suspect]
     Indication: SJOGREN'S SYNDROME
     Dosage: 1 TID ORAL
     Route: 048
     Dates: start: 20050701, end: 20050710
  2. FOLIC ACID [Concomitant]
  3. ATENOLOL [Concomitant]
  4. ASPIRIN [Concomitant]
  5. DETROL LA [Concomitant]
  6. ALLEGRA [Concomitant]
  7. PLAVIX [Concomitant]
  8. DYAZIDE [Concomitant]
  9. PERCOCET [Concomitant]
  10. ACIPHEX [Concomitant]
  11. NEURONTIN [Concomitant]
  12. MAGNESIUM [Concomitant]
  13. FISH OIL [Concomitant]
  14. CALCIUM WITH VITAMIN D [Concomitant]
  15. METHOTREXATE [Concomitant]
  16. ZETIA [Concomitant]
  17. DICLOFENAC SODIUM [Concomitant]

REACTIONS (8)
  - BILE DUCT STONE [None]
  - CHILLS [None]
  - CHROMATURIA [None]
  - LIVER FUNCTION TEST ABNORMAL [None]
  - NAUSEA [None]
  - OBSTRUCTION [None]
  - PAIN [None]
  - PRURITUS [None]
